FAERS Safety Report 16071885 (Version 1)
Quarter: 2019Q1

REPORT INFORMATION
  Report Type: Spontaneous
  Country: US (occurrence: US)
  Receive Date: 20190124
  Receipt Date: 20190124
  Transmission Date: 20190418
  Serious: Yes (Hospitalization)
  Sender: FDA-Public Use
  Company Number: None

PATIENT
  Age: 57 Year
  Sex: Female

DRUGS (1)
  1. TACROLIMUS CAP 0.5MG [Suspect]
     Active Substance: TACROLIMUS
     Dates: start: 201809

REACTIONS (5)
  - Drug level increased [None]
  - Therapy cessation [None]
  - Vomiting [None]
  - Pneumonia [None]
  - Nausea [None]

NARRATIVE: CASE EVENT DATE: 20190124
